FAERS Safety Report 4355012-3 (Version None)
Quarter: 2004Q2

REPORT INFORMATION
  Report Type: 
  Country: None (occurrence: None)
  Receive Date: 20040504
  Receipt Date: 20040421
  Transmission Date: 20050107
  Serious: Yes (Death, Other)
  Sender: FDA-Public Use
  Company Number: US-SHR-04-024402

PATIENT
  Age: 80 Year
  Sex: Female

DRUGS (6)
  1. FLUDARA [Suspect]
     Indication: CHRONIC LYMPHOCYTIC LEUKAEMIA
     Dosage: SIX CYCLES, INTRAVENOUS
     Route: 042
     Dates: start: 19991101, end: 20000101
  2. RITUXIMAB(RITUXIMAB) [Suspect]
     Indication: CHRONIC LYMPHOCYTIC LEUKAEMIA
     Dosage: EVERY WEEK X 4
     Dates: start: 20010801, end: 20010101
  3. RITUXIMAB(RITUXIMAB) [Suspect]
     Indication: CHRONIC LYMPHOCYTIC LEUKAEMIA
     Dosage: EVERY WEEK X 4
     Dates: start: 20020301, end: 20020301
  4. RITUXIMAB(RITUXIMAB) [Suspect]
     Indication: CHRONIC LYMPHOCYTIC LEUKAEMIA
     Dosage: EVERY WEEK X 4
     Dates: start: 20021101, end: 20021101
  5. CYTOXAN [Suspect]
     Indication: CHRONIC LYMPHOCYTIC LEUKAEMIA
     Dates: start: 20010801, end: 20010101
  6. DECADRON [Suspect]
     Indication: CHRONIC LYMPHOCYTIC LEUKAEMIA
     Dates: start: 20010801, end: 20010101

REACTIONS (4)
  - ANAEMIA HAEMOLYTIC AUTOIMMUNE [None]
  - BLOOD URIC ACID INCREASED [None]
  - MULTI-ORGAN DISORDER [None]
  - NEUROENDOCRINE CARCINOMA OF THE SKIN [None]
